FAERS Safety Report 4439934-0 (Version None)
Quarter: 2004Q3

REPORT INFORMATION
  Report Type: 
  Country: None (occurrence: None)
  Receive Date: 20040902
  Receipt Date: 20040807
  Transmission Date: 20050211
  Serious: Yes (Hospitalization)
  Sender: FDA-Public Use
  Company Number: PHHO2004US11255

PATIENT
  Age: 35 Year
  Sex: Male
  Weight: 84 kg

DRUGS (21)
  1. FTY720 VS MYCOPHENOLATE MOFETIL [Suspect]
     Indication: RENAL TRANSPLANT
     Dosage: CODE NOT BROKEN
     Route: 048
     Dates: start: 20040729, end: 20040805
  2. FTY720 VS MYCOPHENOLATE MOFETIL [Suspect]
     Dosage: CODE NOT BROKEN
     Route: 048
     Dates: start: 20040805, end: 20040807
  3. FTY720 VS MYCOPHENOLATE MOFETIL [Suspect]
     Dosage: CODE NOT BROKEN
     Dates: start: 20040809, end: 20040810
  4. FTY720 VS MYCOPHENOLATE MOFETIL [Suspect]
     Dosage: CODE NOT BROKEN (HALF DOSE)
     Dates: start: 20040811, end: 20040818
  5. FTY720 VS MYCOPHENOLATE MOFETIL [Suspect]
     Dosage: CODE NOT BROKEN
     Dates: start: 20040825
  6. SOLU-MEDROL [Suspect]
     Indication: RENAL TRANSPLANT
     Dosage: 500 MG, QD
     Route: 042
     Dates: start: 20040729, end: 20040729
  7. SOLU-MEDROL [Suspect]
     Dosage: 200 MG, QD
     Route: 042
     Dates: start: 20040730, end: 20040730
  8. SOLU-MEDROL [Suspect]
     Dosage: 160 MG, QD
     Route: 042
     Dates: start: 20040731, end: 20040731
  9. PREDNISONE [Suspect]
     Indication: RENAL TRANSPLANT
     Dosage: 200 MG, QD
     Route: 048
     Dates: start: 20040801, end: 20040801
  10. PREDNISONE [Suspect]
     Dosage: 150 MG, QD
     Route: 048
     Dates: start: 20040802, end: 20040802
  11. PREDNISONE [Suspect]
     Dosage: 100 MG, QD
     Route: 048
     Dates: start: 20040803, end: 20040803
  12. PREDNISONE [Suspect]
     Dosage: 75 MG, QD
     Route: 048
     Dates: start: 20040804, end: 20040804
  13. PREDNISONE [Suspect]
     Dosage: 50 MG, QD
     Route: 048
     Dates: start: 20040805, end: 20040805
  14. PREDNISONE [Suspect]
     Dosage: 40 MG, QD
     Route: 048
     Dates: start: 20040806
  15. NEORAL [Suspect]
     Indication: RENAL TRANSPLANT
     Dosage: 650 MG, QD
     Route: 048
     Dates: start: 20040729, end: 20040729
  16. NEORAL [Suspect]
     Dosage: 300 MG, BID
     Route: 048
     Dates: start: 20040730, end: 20040730
  17. NEORAL [Suspect]
     Dosage: 575 MG / DAY
     Route: 048
     Dates: start: 20040731, end: 20040731
  18. NEORAL [Suspect]
     Dosage: 275 MG, BID
     Route: 048
     Dates: start: 20040801, end: 20040802
  19. NEORAL [Suspect]
     Dosage: 525 MG / DAY
     Route: 048
     Dates: start: 20040803
  20. GENTAMYCIN SULFATE [Concomitant]
  21. AMPICILLIN [Concomitant]

REACTIONS (9)
  - ABDOMINAL PAIN [None]
  - CONSTIPATION [None]
  - NAUSEA [None]
  - PERITONEAL DIALYSIS [None]
  - PERITONITIS [None]
  - POST PROCEDURAL COMPLICATION [None]
  - PYREXIA [None]
  - STAPHYLOCOCCAL INFECTION [None]
  - VOMITING [None]
